FAERS Safety Report 16505782 (Version 2)
Quarter: 2019Q3

REPORT INFORMATION
  Report Type: Report from Study
  Country: US (occurrence: US)
  Receive Date: 20190701
  Receipt Date: 20190930
  Transmission Date: 20191004
  Serious: Yes (Other)
  Sender: FDA-Public Use
  Company Number: US-CLOVIS ONCOLOGY-CLO-2019-001244

PATIENT
  Age: 66 Year
  Sex: Female

DRUGS (2)
  1. RUBRACA [Suspect]
     Active Substance: RUCAPARIB CAMSYLATE
     Dosage: 600MG IN AM AND 300MG PM
     Route: 048
     Dates: start: 201905
  2. RUBRACA [Suspect]
     Active Substance: RUCAPARIB CAMSYLATE
     Indication: OVARIAN CANCER
     Dosage: UNK
     Route: 048
     Dates: end: 201905

REACTIONS (6)
  - Insomnia [Unknown]
  - Anaemia [Unknown]
  - Joint swelling [Not Recovered/Not Resolved]
  - Taste disorder [Unknown]
  - Product dose omission [Unknown]
  - Nocturia [Unknown]

NARRATIVE: CASE EVENT DATE: 201901
